FAERS Safety Report 6219851-6 (Version None)
Quarter: 2009Q2

REPORT INFORMATION
  Report Type: 
  Country: None (occurrence: None)
  Receive Date: 20090609
  Receipt Date: 20090528
  Transmission Date: 20091009
  Serious: Yes (Other)
  Sender: FDA-Public Use
  Company Number: US-PFIZER INC-2009220956

PATIENT
  Age: 75 Year
  Sex: Female

DRUGS (1)
  1. TOVIAZ [Suspect]

REACTIONS (3)
  - DIZZINESS [None]
  - FALL [None]
  - HEAD INJURY [None]
